FAERS Safety Report 26127931 (Version 1)
Quarter: 2025Q4

REPORT INFORMATION
  Report Type: Spontaneous
  Country: KR (occurrence: KR)
  Receive Date: 20251206
  Receipt Date: 20251206
  Transmission Date: 20260118
  Serious: Yes (Hospitalization, Other)
  Sender: CELLTRION
  Company Number: KR-CELLTRION INC.-2025KR043660

PATIENT

DRUGS (43)
  1. INFLIXIMAB [Suspect]
     Active Substance: INFLIXIMAB
     Indication: Rheumatoid arthritis
     Dosage: UNK
     Route: 058
     Dates: start: 20240505
  2. INFLIXIMAB [Suspect]
     Active Substance: INFLIXIMAB
     Dosage: (LAST ADMINISTRATION DATE PRIOR TO EVENT ONSET)
     Route: 058
     Dates: start: 20251010
  3. GREEN ENEMA [Concomitant]
     Indication: Constipation
     Dosage: 1 BAG, ONCE
     Route: 054
     Dates: start: 20251110, end: 20251110
  4. GREEN ENEMA [Concomitant]
     Indication: Bowel preparation
  5. CITOPCIN [CIPROFLOXACIN] [Concomitant]
     Indication: Antibiotic prophylaxis
     Dosage: 400 MG, ONCE
     Route: 042
     Dates: start: 20251110, end: 20251110
  6. MURATIC [Concomitant]
     Indication: Pain
     Dosage: 1 AMP, QD
     Route: 042
     Dates: start: 20251110, end: 20251113
  7. RAMOSETRON HYDROCHLORIDE [Concomitant]
     Active Substance: RAMOSETRON HYDROCHLORIDE
     Indication: Prophylaxis of nausea and vomiting
     Dosage: 1 AMP, QD
     Route: 042
     Dates: start: 20251111, end: 20251113
  8. RAMOSETRON HYDROCHLORIDE [Concomitant]
     Active Substance: RAMOSETRON HYDROCHLORIDE
     Indication: Nausea
  9. RAMOSETRON HYDROCHLORIDE [Concomitant]
     Active Substance: RAMOSETRON HYDROCHLORIDE
     Indication: Vomiting
  10. PANTOPRAZOLE SODIUM [Concomitant]
     Active Substance: PANTOPRAZOLE SODIUM
     Indication: Therapeutic procedure
     Dosage: 1 VIAL, ONCE
     Route: 042
     Dates: start: 20251111, end: 20251113
  11. PANTOPRAZOLE SODIUM [Concomitant]
     Active Substance: PANTOPRAZOLE SODIUM
     Indication: Gastric pH decreased
  12. HYDROCORTISONE SODIUM SUCCINATE [Concomitant]
     Active Substance: HYDROCORTISONE SODIUM SUCCINATE
     Indication: Inflammation
     Dosage: 1 VIAL, ONCE
     Route: 042
     Dates: start: 20251111, end: 20251111
  13. HYDROCORTISONE SODIUM SUCCINATE [Concomitant]
     Active Substance: HYDROCORTISONE SODIUM SUCCINATE
     Indication: Hypersensitivity
  14. HYDROCORTISONE SODIUM SUCCINATE [Concomitant]
     Active Substance: HYDROCORTISONE SODIUM SUCCINATE
     Indication: Adrenal insufficiency
  15. IPRATROPIUM BROMIDE [Concomitant]
     Active Substance: IPRATROPIUM BROMIDE
     Indication: Chronic obstructive pulmonary disease
     Dosage: 1 AMP, ONCE (500 MCG/2)
     Dates: start: 20251111, end: 20251111
  16. IPRATROPIUM BROMIDE [Concomitant]
     Active Substance: IPRATROPIUM BROMIDE
     Indication: Asthma
  17. MUCOMYST [Concomitant]
     Active Substance: ACETYLCYSTEINE
     Indication: Mucolytic treatment
     Dosage: 1 AMP, ONCE
     Dates: start: 20251111, end: 20251111
  18. MUCOMYST [Concomitant]
     Active Substance: ACETYLCYSTEINE
     Indication: Analgesic drug level increased
  19. CITOPCIN [CIPROFLOXACIN] [Concomitant]
     Indication: Antibiotic prophylaxis
     Dosage: 400 MG, QD
     Route: 042
     Dates: start: 20251111, end: 20251117
  20. ALANYL GLUTAMINE [Concomitant]
     Active Substance: ALANYL GLUTAMINE
     Indication: Nutritional supplementation
     Dosage: 1 BTL, QD
     Route: 042
     Dates: start: 20251111, end: 20251113
  21. CERNEVIT [Concomitant]
     Active Substance: VITAMINS
     Indication: Vitamin supplementation
     Dosage: 1 VIAL, QD
     Route: 042
     Dates: start: 20251111, end: 20251113
  22. MAXIGESIC [IBUPROFEN;PARACETAMOL] [Concomitant]
     Indication: Analgesic intervention supportive therapy
     Dosage: 1 VIAL, QD
     Route: 042
     Dates: start: 20251111, end: 20251113
  23. ROCURONIUM BROMIDE [Concomitant]
     Active Substance: ROCURONIUM BROMIDE
     Indication: Neuromuscular blocking therapy
     Dosage: 2 VIAL, QD
     Route: 042
     Dates: start: 20251111, end: 20251111
  24. REMIVA [Concomitant]
     Indication: Adjuvant therapy
     Dosage: 1 VIAL, ONCE
     Route: 042
     Dates: start: 20251111, end: 20251111
  25. HEPARIN [Concomitant]
     Active Substance: HEPARIN SODIUM
     Indication: Anticoagulant therapy
     Dosage: 1 VIAL, ONCE
     Route: 042
     Dates: start: 20251111, end: 20251111
  26. NICARDIPINE HYDROCHLORIDE [Concomitant]
     Active Substance: NICARDIPINE HYDROCHLORIDE
     Indication: Hypertension
     Dosage: 1 AMP, ONCE
     Dates: start: 20251111, end: 20251111
  27. FENTANYL [Concomitant]
     Active Substance: FENTANYL
     Indication: Analgesic intervention supportive therapy
     Dosage: 3 AMP, ONCE
     Route: 042
     Dates: start: 20251111, end: 20251111
  28. FENTANYL [Concomitant]
     Active Substance: FENTANYL
     Indication: Analgesic therapy
     Dosage: 1 AMP, ONCE
     Route: 042
     Dates: start: 20251111, end: 20251111
  29. FENTANYL [Concomitant]
     Active Substance: FENTANYL
     Indication: Anaesthesia
  30. EPHEDRINE HYDROCHLORIDE [Concomitant]
     Active Substance: EPHEDRINE HYDROCHLORIDE
     Indication: Hypotension
     Dosage: 1 AMP, ONCE
     Route: 042
     Dates: start: 20251111, end: 20251111
  31. URICAINE [Concomitant]
     Indication: Anaesthesia
     Dosage: 2 SRG, ONCE
     Route: 042
     Dates: start: 20251111, end: 20251111
  32. ROPIVA [Concomitant]
     Indication: Anaesthesia
     Dosage: 1 AMP, ONCE
     Route: 042
     Dates: start: 20251111, end: 20251111
  33. ASEC [ACECLOFENAC] [Concomitant]
     Indication: Pain
     Dosage: 1 TAB, BID
     Route: 048
     Dates: start: 20251113, end: 20251117
  34. ASEC [ACECLOFENAC] [Concomitant]
     Indication: Inflammation
     Dosage: 1 TAB, BID PRN
     Route: 048
     Dates: start: 20251118
  35. GASTER [Concomitant]
     Active Substance: FAMOTIDINE
     Indication: Gastric pH decreased
     Dosage: 1 TAB, TID
     Route: 048
     Dates: start: 20251113, end: 20251117
  36. GASTER [Concomitant]
     Active Substance: FAMOTIDINE
     Indication: Ulcer
  37. GASTER [Concomitant]
     Active Substance: FAMOTIDINE
     Indication: Gastrooesophageal reflux disease
  38. SINIL M [Concomitant]
     Indication: Analgesic intervention supportive therapy
     Dosage: 1 TAB, TID
     Route: 048
     Dates: start: 20251113, end: 20251117
  39. SINIL M [Concomitant]
     Dosage: 1 TAB, BID PRN
     Route: 048
     Dates: start: 20251118
  40. LEVODROPROPIZINE [Concomitant]
     Active Substance: LEVODROPROPIZINE
     Indication: Antitussive therapy
     Dosage: 1 TAB, TID
     Route: 048
     Dates: start: 20251114, end: 20251117
  41. ACTIFED (PSEUDOEPHEDRINE HYDROCHLORIDE\TRIPROLIDINE HYDROCHLORIDE) [Concomitant]
     Active Substance: PSEUDOEPHEDRINE HYDROCHLORIDE\TRIPROLIDINE HYDROCHLORIDE
     Indication: Nasal congestion
     Dosage: 1 TAB, TID
     Route: 048
     Dates: start: 20251114, end: 20251117
  42. ACTIFED (PSEUDOEPHEDRINE HYDROCHLORIDE\TRIPROLIDINE HYDROCHLORIDE) [Concomitant]
     Active Substance: PSEUDOEPHEDRINE HYDROCHLORIDE\TRIPROLIDINE HYDROCHLORIDE
     Indication: Rhinorrhoea
  43. MIRABEGRON [Concomitant]
     Active Substance: MIRABEGRON
     Indication: Hypertonic bladder
     Dosage: 1 TAB, QD
     Route: 048
     Dates: start: 20251118

REACTIONS (1)
  - Prostate cancer [Recovered/Resolved]

NARRATIVE: CASE EVENT DATE: 20251111
